FAERS Safety Report 18487475 (Version 2)
Quarter: 2020Q4

REPORT INFORMATION
  Report Type: Report from Study
  Country: CH (occurrence: CH)
  Receive Date: 20201110
  Receipt Date: 20201221
  Transmission Date: 20210114
  Serious: Yes (Hospitalization, Disabling, Other)
  Sender: FDA-Public Use
  Company Number: CH-GILEAD-2020-0503689

PATIENT
  Age: 68 Year
  Sex: Female

DRUGS (13)
  1. OPTIFEN [DICLOFENAC SODIUM] [Concomitant]
     Dosage: 12000 MG
     Route: 048
     Dates: start: 20201026
  2. MEPHAMESON [Concomitant]
     Active Substance: DEXAMETHASONE
     Dosage: 6 MG
     Route: 042
     Dates: start: 20201024, end: 20201026
  3. REMDESIVIR. [Suspect]
     Active Substance: REMDESIVIR
     Indication: COVID-19
     Dosage: 100 MG, QD
     Route: 042
     Dates: start: 20201026, end: 20201104
  4. ROSUVASTATIN. [Concomitant]
     Active Substance: ROSUVASTATIN
     Dosage: 10 MG
     Route: 048
  5. CLEXANE [Concomitant]
     Active Substance: ENOXAPARIN SODIUM
     Dosage: 40 MG
     Route: 058
     Dates: start: 20201024
  6. DEXAMETHASON GALEPHARM [DEXAMETHASONE] [Concomitant]
     Dosage: 6 MG
     Route: 048
     Dates: start: 20201027, end: 20201031
  7. GLICLAZID MEPHA [Concomitant]
     Active Substance: GLICLAZIDE
     Dosage: 60 MG
     Route: 048
     Dates: start: 20201103
  8. NOVORAPID [Concomitant]
     Active Substance: INSULIN ASPART
     Dosage: UNK
     Route: 058
     Dates: start: 20201026
  9. DOSPIR [Concomitant]
     Active Substance: ALBUTEROL SULFATE\IPRATROPIUM BROMIDE
     Dosage: 4 DOSAGE FORM
     Route: 055
     Dates: start: 20201028, end: 20201104
  10. TEMISARTAN [Concomitant]
     Dosage: 80 MG
     Route: 048
     Dates: end: 20201026
  11. JARDIANCE [Concomitant]
     Active Substance: EMPAGLIFLOZIN
     Dosage: 10 MG
     Route: 048
     Dates: start: 20201103
  12. PANTOZOL [Concomitant]
     Active Substance: PANTOPRAZOLE SODIUM
     Dosage: 40 MG
     Route: 048
     Dates: start: 20201027
  13. ATACAND [Concomitant]
     Active Substance: CANDESARTAN CILEXETIL
     Dosage: 16 MG
     Route: 048
     Dates: start: 20201027

REACTIONS (1)
  - Delirium [Not Recovered/Not Resolved]

NARRATIVE: CASE EVENT DATE: 20201030
